FAERS Safety Report 12281931 (Version 2)
Quarter: 2016Q2

REPORT INFORMATION
  Report Type: Spontaneous
  Country: US (occurrence: US)
  Receive Date: 20160419
  Receipt Date: 20160509
  Transmission Date: 20160815
  Serious: Yes (Other)
  Sender: FDA-Public Use
  Company Number: US-MDT-ADR-2016-00703

PATIENT
  Sex: Male

DRUGS (3)
  1. BACLOFEN. [Suspect]
     Active Substance: BACLOFEN
     Route: 037
  2. GABLOFEN [Suspect]
     Active Substance: BACLOFEN
     Route: 037
  3. KEPPRA [Suspect]
     Active Substance: LEVETIRACETAM
     Route: 042

REACTIONS (12)
  - Seizure [Recovered/Resolved]
  - Dysarthria [Recovered/Resolved]
  - Nystagmus [Recovered/Resolved]
  - Hypotonia [Recovered/Resolved]
  - Unresponsive to stimuli [Recovered/Resolved]
  - Overdose [Recovered/Resolved]
  - Glassy eyes [Recovered/Resolved]
  - Cerebrovascular accident [Recovered/Resolved]
  - Generalised tonic-clonic seizure [Unknown]
  - Vomiting [Recovered/Resolved]
  - Therapeutic response increased [Recovered/Resolved]
  - Hypopnoea [Recovered/Resolved]

NARRATIVE: CASE EVENT DATE: 20160413
